FAERS Safety Report 9405217 (Version 1)
Quarter: 2013Q3

REPORT INFORMATION
  Report Type: Spontaneous
  Country: US (occurrence: US)
  Receive Date: 20130717
  Receipt Date: 20130717
  Transmission Date: 20140515
  Serious: Yes (Other)
  Sender: FDA-Public Use
  Company Number: US-ELI_LILLY_AND_COMPANY-US201307003846

PATIENT
  Sex: Male

DRUGS (1)
  1. CIALIS [Suspect]
     Dosage: 1 DF, UNK
     Dates: start: 20130710

REACTIONS (5)
  - Erection increased [Unknown]
  - Penis disorder [Unknown]
  - Hypoaesthesia [Unknown]
  - Penile discharge [Unknown]
  - Intentional drug misuse [Unknown]
